FAERS Safety Report 23082301 (Version 4)
Quarter: 2024Q2

REPORT INFORMATION
  Report Type: Report from Study
  Country: US (occurrence: US)
  Receive Date: 20231019
  Receipt Date: 20240619
  Transmission Date: 20240716
  Serious: Yes (Hospitalization, Other)
  Sender: FDA-Public Use
  Company Number: US-JAZZ PHARMACEUTICALS-2023-US-012435

PATIENT
  Age: 11 Year
  Sex: Male

DRUGS (5)
  1. EPIDIOLEX [Suspect]
     Active Substance: CANNABIDIOL
     Indication: Lennox-Gastaut syndrome
     Dosage: 1.5 MILLILITER, BID
     Route: 048
     Dates: start: 202303
  2. EPIDIOLEX [Suspect]
     Active Substance: CANNABIDIOL
     Indication: Epilepsy
     Dosage: 1.5 MILLILITER, BID
     Route: 048
     Dates: start: 202302
  3. EPIDIOLEX [Suspect]
     Active Substance: CANNABIDIOL
     Dosage: 3.2 MILLILITER, BID
     Route: 048
     Dates: start: 202302
  4. EPIDIOLEX [Suspect]
     Active Substance: CANNABIDIOL
     Dosage: 3.2 MILLILITER, BID
     Route: 048
     Dates: start: 202302
  5. PENICILLIN [Suspect]
     Active Substance: PENICILLIN
     Indication: Product used for unknown indication
     Dosage: UNK

REACTIONS (5)
  - Seizure [Unknown]
  - Hospitalisation [Unknown]
  - Seizure [Unknown]
  - Abdominal pain upper [Unknown]
  - Drug hypersensitivity [Unknown]

NARRATIVE: CASE EVENT DATE: 20240527
